FAERS Safety Report 16123726 (Version 1)
Quarter: 2019Q1

REPORT INFORMATION
  Report Type: Spontaneous
  Country: GB (occurrence: GB)
  Receive Date: 20190327
  Receipt Date: 20190327
  Transmission Date: 20190418
  Serious: Yes (Death, Hospitalization, Other)
  Sender: FDA-Public Use
  Company Number: GB-TAKEDA-2019TUS017407

PATIENT
  Age: 76 Year
  Sex: Female
  Weight: 79 kg

DRUGS (11)
  1. FEBUXOSTAT. [Suspect]
     Active Substance: FEBUXOSTAT
     Dosage: 80 MILLIGRAM, QD
     Route: 048
     Dates: start: 20180618, end: 20180720
  2. SPIRONOLACTONE. [Concomitant]
     Active Substance: SPIRONOLACTONE
     Dosage: UNK
     Route: 065
  3. PREDNISOLONE. [Suspect]
     Active Substance: PREDNISOLONE
     Dosage: 10 MILLIGRAM, QD
     Route: 065
     Dates: end: 20180720
  4. FUROSEMIDE. [Concomitant]
     Active Substance: FUROSEMIDE
     Dosage: UNK
     Route: 065
  5. BISOPROLOL FUMARATE. [Concomitant]
     Active Substance: BISOPROLOL FUMARATE
     Dosage: UNK
     Route: 065
  6. IRBESARTAN HYDROCHLORIDE [Concomitant]
     Active Substance: IRBESARTAN
     Dosage: UNK
     Route: 065
  7. PREDNISOLONE. [Suspect]
     Active Substance: PREDNISOLONE
     Indication: GOUT
     Dosage: 30 MILLIGRAM, QD
     Route: 048
     Dates: start: 20180618
  8. ALIROCUMAB [Suspect]
     Active Substance: ALIROCUMAB
     Indication: TYPE IIA HYPERLIPIDAEMIA
     Dosage: 75 MILLIGRAM
     Route: 058
     Dates: start: 20180206
  9. COLECALCIFEROL [Concomitant]
     Active Substance: CHOLECALCIFEROL
     Dosage: UNK
     Route: 065
  10. FEBUXOSTAT. [Suspect]
     Active Substance: FEBUXOSTAT
     Indication: GOUT
     Dosage: 40 MILLIGRAM, QD
     Route: 048
     Dates: start: 20180201, end: 201805
  11. OXYCODONE HYDROCHLORIDE. [Concomitant]
     Active Substance: OXYCODONE HYDROCHLORIDE
     Dosage: UNK
     Route: 065

REACTIONS (5)
  - Acidosis [Not Recovered/Not Resolved]
  - Cardiogenic shock [Fatal]
  - Underdose [Recovered/Resolved]
  - Acute kidney injury [Recovering/Resolving]
  - Back pain [Recovering/Resolving]

NARRATIVE: CASE EVENT DATE: 20180201
